FAERS Safety Report 19436044 (Version 3)
Quarter: 2021Q3

REPORT INFORMATION
  Report Type: Report from Study
  Country: US (occurrence: US)
  Receive Date: 20210618
  Receipt Date: 20210903
  Transmission Date: 20211014
  Serious: Yes (Hospitalization)
  Sender: FDA-Public Use
  Company Number: NVSC2021US130203

PATIENT
  Sex: Female

DRUGS (1)
  1. KISQALI [Suspect]
     Active Substance: RIBOCICLIB
     Indication: PRODUCT USED FOR UNKNOWN INDICATION
     Dosage: UNK
     Route: 048
     Dates: start: 202005

REACTIONS (10)
  - COVID-19 [Unknown]
  - Headache [Unknown]
  - Fall [Unknown]
  - Product distribution issue [Unknown]
  - Sinus disorder [Unknown]
  - Fatigue [Unknown]
  - Nausea [Unknown]
  - Depressed mood [Unknown]
  - Diarrhoea [Unknown]
  - Constipation [Unknown]
